FAERS Safety Report 25742876 (Version 1)
Quarter: 2025Q3

REPORT INFORMATION
  Report Type: Other
  Country: GB (occurrence: GB)
  Receive Date: 20250830
  Receipt Date: 20250830
  Transmission Date: 20251020
  Serious: Yes (Other)
  Sender: MACLEODS
  Company Number: GB-MACLEODS PHARMA-MAC2022035440

PATIENT

DRUGS (2)
  1. ZONISAMIDE [Suspect]
     Active Substance: ZONISAMIDE
     Indication: Product used for unknown indication
     Route: 065
  2. CLOZARIL [Suspect]
     Active Substance: CLOZAPINE
     Indication: Product used for unknown indication
     Dosage: 300 MILLIGRAM, QD
     Route: 065

REACTIONS (23)
  - Tachycardia [Unknown]
  - Malaise [Unknown]
  - Viral infection [Unknown]
  - Nasopharyngitis [Unknown]
  - Dehydration [Unknown]
  - Oropharyngeal pain [Unknown]
  - Headache [Unknown]
  - Tonsillar inflammation [Unknown]
  - Oropharyngeal pain [Unknown]
  - Palpitations [Unknown]
  - Pharyngitis [Unknown]
  - Myoclonic dystonia [Unknown]
  - Chest pain [Unknown]
  - Neutropenia [Unknown]
  - Eye pain [Unknown]
  - Fatigue [Unknown]
  - Dizziness [Unknown]
  - Ear pain [Unknown]
  - Agranulocytosis [Unknown]
  - Tonsillar exudate [Unknown]
  - Drug interaction [Unknown]
  - Product prescribing issue [Unknown]
  - Eye pain [Unknown]

NARRATIVE: CASE EVENT DATE: 20211124
